FAERS Safety Report 5941381-7 (Version None)
Quarter: 2008Q4

REPORT INFORMATION
  Report Type: 
  Country: None (occurrence: None)
  Receive Date: 20081105
  Receipt Date: 20081028
  Transmission Date: 20090506
  Serious: Yes (Other)
  Sender: FDA-Public Use
  Company Number: RS-JNJFOC-20081005451

PATIENT
  Sex: Female

DRUGS (5)
  1. RISPOLEPT CONSTA [Suspect]
     Route: 030
  2. RISPOLEPT CONSTA [Suspect]
     Indication: SCHIZOPHRENIA
     Route: 030
  3. RISPOLEPT [Suspect]
     Indication: DRUG USE FOR UNKNOWN INDICATION
     Route: 065
  4. LEPONEX [Suspect]
     Route: 048
  5. LEPONEX [Suspect]
     Indication: SCHIZOPHRENIA
     Route: 048

REACTIONS (1)
  - NEUROENDOCRINE TUMOUR [None]
